FAERS Safety Report 8779612 (Version 2)
Quarter: 2012Q4

REPORT INFORMATION
  Report Type: 
  Country: GB (occurrence: GB)
  Receive Date: 20120912
  Receipt Date: 20120912
  Transmission Date: 20130627
  Serious: Yes (Life-Threatening, Hospitalization, Disabling, Other)
  Sender: FDA-Public Use
  Company Number: GB-009507513-0904USA03284

PATIENT

DRUGS (12)
  1. SUSTIVA [Suspect]
     Dosage: 400 mg, qd
     Route: 048
     Dates: start: 20070302, end: 200707
  2. MYCOPHENOLATE MOFETIL [Suspect]
     Indication: PROPHYLAXIS AGAINST TRANSPLANT REJECTION
  3. NELFINAVIR MESYLATE [Suspect]
     Indication: ANTIRETROVIRAL THERAPY
  4. SULFAMETHOXAZOLE AN (+) TRIMETHOPRIM [Suspect]
     Indication: ANTIRETROVIRAL THERAPY
  5. LAMIVUDINE [Suspect]
     Indication: ANTIRETROVIRAL THERAPY
     Dosage: 150 mg, bid
     Route: 048
     Dates: start: 20070330, end: 200707
  6. DIDANOSINE [Suspect]
     Indication: ANTIRETROVIRAL THERAPY
     Route: 048
  7. ZIDOVUDINE [Suspect]
     Indication: ANTIRETROVIRAL THERAPY
     Dosage: 200 mg, bid
     Route: 048
     Dates: start: 20070330, end: 200707
  8. ABACAVIR [Suspect]
  9. RAPAMUNE [Suspect]
     Indication: PROPHYLAXIS AGAINST TRANSPLANT REJECTION
  10. PREDNISOLONE [Suspect]
     Indication: PROPHYLAXIS AGAINST TRANSPLANT REJECTION
  11. KIVEXA [Suspect]
     Indication: ANTIRETROVIRAL THERAPY
  12. ISENTRESS [Suspect]
     Route: 048

REACTIONS (31)
  - Liver disorder [Recovering/Resolving]
  - Acute hepatic failure [Unknown]
  - Cachexia [Unknown]
  - Toxicity to various agents [Unknown]
  - Hepatic encephalopathy [Unknown]
  - Hyperlipidaemia [Unknown]
  - Hypertension [Unknown]
  - Lymphadenopathy [Unknown]
  - Myopathy [Unknown]
  - Pharyngitis [Unknown]
  - Rash [Unknown]
  - Transplant rejection [Unknown]
  - Blood immunoglobulin E increased [Unknown]
  - Cholestasis [Unknown]
  - Hepatic necrosis [Unknown]
  - Hepatitis [Unknown]
  - Hepatomegaly [Unknown]
  - Liver transplant [Recovering/Resolving]
  - Pyrexia [Unknown]
  - Renal disorder [Unknown]
  - Liver transplant rejection [Unknown]
  - Hepatic function abnormal [Unknown]
  - Renal impairment [Unknown]
  - Disease recurrence [Unknown]
  - Drug ineffective [Unknown]
  - HIV infection [Unknown]
  - Graft dysfunction [Unknown]
  - Jaundice [Recovering/Resolving]
  - Liver function test abnormal [Recovering/Resolving]
  - Ocular icterus [Recovering/Resolving]
  - Chromaturia [Recovering/Resolving]
